FAERS Safety Report 5007496-5 (Version None)
Quarter: 2006Q2

REPORT INFORMATION
  Report Type: 
  Country: None (occurrence: None)
  Receive Date: 20060517
  Receipt Date: 20060510
  Transmission Date: 20061013
  Serious: Yes (Hospitalization)
  Sender: FDA-Public Use
  Company Number: 145741USA

PATIENT
  Sex: Female

DRUGS (3)
  1. BUMETANIDE [Suspect]
     Indication: OEDEMA
     Dosage: 1 MILLIGRAM QD ORAL
     Route: 048
     Dates: start: 20060107
  2. NITROGLYCERIN [Concomitant]
  3. NORVASC [Concomitant]

REACTIONS (2)
  - DELUSION [None]
  - MALAISE [None]
